FAERS Safety Report 9627960 (Version 1)
Quarter: 2013Q4

REPORT INFORMATION
  Report Type: Spontaneous
  Country: DK (occurrence: DK)
  Receive Date: 20131016
  Receipt Date: 20131016
  Transmission Date: 20140711
  Serious: Yes (Death, Other)
  Sender: FDA-Public Use
  Company Number: DK-B.I. PHARMACEUTICALS,INC./RIDGEFIELD-2013-BI-32740GD

PATIENT
  Age: 75 Year
  Sex: Male

DRUGS (4)
  1. PRADAXA [Suspect]
     Indication: ATRIAL FIBRILLATION
     Dosage: 300 MG
     Route: 048
  2. ENALAPRIL [Concomitant]
  3. SIMVASTATIN [Concomitant]
  4. PANTOPRAZOLE [Concomitant]

REACTIONS (4)
  - Cerebral haematoma [Fatal]
  - Intraventricular haemorrhage [Fatal]
  - Brain midline shift [Fatal]
  - Cerebral haemorrhage [Unknown]
